FAERS Safety Report 9685581 (Version 6)
Quarter: 2014Q2

REPORT INFORMATION
  Report Type: Report from Study
  Country: DE (occurrence: DE)
  Receive Date: 20131113
  Receipt Date: 20140602
  Transmission Date: 20141212
  Serious: Yes (Death, Hospitalization)
  Sender: FDA-Public Use
  Company Number: DE-VERTEX PHARMACEUTICALS INC-2013-011005

PATIENT
  Age: 62 Year
  Sex: Female
  Weight: 45 kg

DRUGS (25)
  1. VX-950 (TELAPREVIR) [Suspect]
     Indication: HEPATITIS C
     Dosage: 2250 MG, QD
     Route: 048
     Dates: start: 20120430, end: 20120723
  2. RIBAVIRIN [Suspect]
     Indication: HEPATITIS C
     Dosage: 200 MG, UNK
     Route: 048
     Dates: start: 20120719, end: 20130331
  3. PEGASYS [Suspect]
     Indication: HEPATITIS C
     Dosage: 180 ?G, UNK
     Route: 058
     Dates: start: 20120430, end: 20130325
  4. CYCLOSPORIN [Concomitant]
     Indication: IMMUNOSUPPRESSION
     Dates: end: 20120817
  5. CYCLOSPORIN [Concomitant]
     Dosage: 100 MG, UNK
     Dates: start: 20120818, end: 20121017
  6. CYCLOSPORIN [Concomitant]
     Dosage: 90 MG, UNK
     Dates: start: 20121018
  7. CYCLOSPORIN [Concomitant]
     Dates: start: 20121018
  8. BERLTHYROX [Concomitant]
     Indication: THYROID DISORDER
     Dosage: 50 MG, UNK
     Dates: end: 20120718
  9. ALLOPURINOL [Concomitant]
     Indication: HIV INFECTION
     Dosage: 100 MG, UNK
     Route: 065
  10. ALLOPURINOL [Concomitant]
     Indication: ADVERSE EVENT
     Route: 065
  11. PANTOPRAZOL [Concomitant]
     Indication: ABDOMINAL PAIN UPPER
     Dosage: 40 MG, UNK
  12. URSOFALK [Concomitant]
     Indication: GALLBLADDER DISORDER
     Dosage: 1500 MG, UNK
  13. CALCILAC [Concomitant]
     Indication: CALCIUM DEFICIENCY
     Dates: end: 20120718
  14. EPOETIN ALFA [Concomitant]
     Indication: ADVERSE EVENT
     Dosage: 3000 IU, 3 DOSES/WK
     Route: 058
     Dates: end: 20120621
  15. EPOETIN ALFA [Concomitant]
     Dosage: 5000 IU, 3 DOSES/WK
     Route: 058
     Dates: start: 20120622, end: 20121217
  16. EPOETIN ALFA [Concomitant]
     Dosage: 6000 IU, UNK
     Route: 058
     Dates: start: 20121218
  17. EPOETIN ALFA [Concomitant]
     Route: 058
     Dates: start: 20121218
  18. CEFTRIAXONE [Concomitant]
     Indication: ADVERSE EVENT
     Dates: start: 201208, end: 201208
  19. TORASEMID [Concomitant]
     Indication: ADVERSE EVENT
     Dates: start: 201207, end: 201211
  20. CALCIUM AND D3 [Concomitant]
     Indication: PROPHYLAXIS
     Dosage: UNK
     Dates: start: 201207
  21. L-THYROXINE [Concomitant]
     Indication: THYROID DISORDER
     Dates: end: 20120718
  22. L-THYROXINE [Concomitant]
     Dosage: 50 MG, UNK
     Dates: start: 20120719
  23. L-THYROXINE [Concomitant]
     Dates: start: 20120719
  24. CIPROFLOXACIN [Concomitant]
     Indication: PYREXIA
     Dates: end: 201208
  25. VIGANTOLETTEN [Concomitant]
     Indication: ADVERSE EVENT
     Dosage: 1000 IU, UNK
     Dates: start: 20130404

REACTIONS (2)
  - Shock haemorrhagic [Fatal]
  - Cholangitis [Not Recovered/Not Resolved]
